FAERS Safety Report 6140543-6 (Version None)
Quarter: 2009Q2

REPORT INFORMATION
  Report Type: 
  Country: None (occurrence: None)
  Receive Date: 20090402
  Receipt Date: 20090320
  Transmission Date: 20091009
  Serious: Yes (Other)
  Sender: FDA-Public Use
  Company Number: FR-RANBAXY-2009RR-22990

PATIENT
  Age: 12 Year
  Sex: Female

DRUGS (2)
  1. FLUOXETINE [Suspect]
     Dosage: UNK
     Dates: start: 20070624, end: 20070711
  2. CYAMEMAZINE [Suspect]

REACTIONS (5)
  - ANTIDIURETIC HORMONE ABNORMALITY [None]
  - BLOOD OSMOLARITY DECREASED [None]
  - HYPOKALAEMIA [None]
  - HYPONATRAEMIA [None]
  - SUICIDAL IDEATION [None]
